FAERS Safety Report 18386374 (Version 3)
Quarter: 2021Q1

REPORT INFORMATION
  Report Type: Spontaneous
  Country: US (occurrence: US)
  Receive Date: 20201015
  Receipt Date: 20210331
  Transmission Date: 20210419
  Serious: Yes (Hospitalization, Other)
  Sender: FDA-Public Use
  Company Number: US-PFIZER INC-2020395879

PATIENT
  Age: 77 Year
  Sex: Female
  Weight: 101.15 kg

DRUGS (2)
  1. TOVIAZ [Suspect]
     Active Substance: FESOTERODINE FUMARATE
     Indication: URINARY INCONTINENCE
     Dosage: 8 MG, TAKEN ONCE DAILY
  2. MIRAPEX [Concomitant]
     Active Substance: PRAMIPEXOLE DIHYDROCHLORIDE
     Indication: URINARY INCONTINENCE
     Dosage: 40 MG, DAILY (UNKNOWN, BUT SHE THINKS 40MG DAILY)

REACTIONS (6)
  - Vomiting [Recovering/Resolving]
  - COVID-19 [Unknown]
  - Illness [Recovering/Resolving]
  - Product dose omission issue [Unknown]
  - Bile duct stone [Recovering/Resolving]
  - Therapeutic product effect incomplete [Unknown]

NARRATIVE: CASE EVENT DATE: 20200927
